FAERS Safety Report 5286286-2 (Version None)
Quarter: 2007Q2

REPORT INFORMATION
  Report Type: 
  Country: None (occurrence: None)
  Receive Date: 20070404
  Receipt Date: 20070326
  Transmission Date: 20071010
  Serious: No
  Sender: FDA-Public Use
  Company Number: FR-BAXTER-2007BH003181

PATIENT
  Age: 76 Year
  Sex: Male

DRUGS (7)
  1. EXTRANEAL [Suspect]
     Indication: PERITONEAL DIALYSIS
     Dosage: DOSE UNIT:UNKNOWN
     Route: 033
     Dates: start: 20010806, end: 20050530
  2. LASIX [Concomitant]
  3. BISOPROLOL [Concomitant]
  4. ALDACTONE [Concomitant]
  5. OMEPRAZOLE [Concomitant]
  6. ASPEGIC 325 [Concomitant]
  7. NOVONORM [Concomitant]

REACTIONS (2)
  - INTESTINAL OBSTRUCTION [None]
  - SCLEROSING ENCAPSULATING PERITONITIS [None]
